FAERS Safety Report 5688030-3 (Version None)
Quarter: 2008Q1

REPORT INFORMATION
  Report Type: 
  Country: None (occurrence: None)
  Receive Date: 20080328
  Receipt Date: 20070724
  Transmission Date: 20080703
  Serious: Yes (Hospitalization)
  Sender: FDA-Public Use
  Company Number: US-BAYER-US-2006-019731

PATIENT
  Age: 46 Year
  Sex: Female

DRUGS (2)
  1. MIRENA [Suspect]
     Indication: CONTRACEPTION
     Route: 015
     Dates: start: 20041201, end: 20060201
  2. TOPROL-XL [Concomitant]
     Dosage: UNIT DOSE: 50 MG
     Route: 048

REACTIONS (5)
  - IUD MIGRATION [None]
  - POST PROCEDURAL HAEMORRHAGE [None]
  - PREMATURE MENOPAUSE [None]
  - PROCEDURAL PAIN [None]
  - URINARY INCONTINENCE [None]
